FAERS Safety Report 7045009-7 (Version None)
Quarter: 2010Q4

REPORT INFORMATION
  Report Type: 
  Country: None (occurrence: None)
  Receive Date: 20101014
  Receipt Date: 20101007
  Transmission Date: 20110411
  Serious: Yes (Death, Hospitalization, Other)
  Sender: FDA-Public Use
  Company Number: JP-BAYER-201012828BYL

PATIENT
  Age: 76 Year
  Sex: Male
  Weight: 64 kg

DRUGS (19)
  1. NEXAVAR [Suspect]
     Indication: HEPATIC NEOPLASM MALIGNANT
     Dosage: TOTAL DAILY DOSE: 800 MG  UNIT DOSE: 200 MG
     Route: 048
     Dates: start: 20100122, end: 20100224
  2. NEXAVAR [Suspect]
     Dosage: TOTAL DAILY DOSE: 400 MG  UNIT DOSE: 200 MG
     Route: 048
     Dates: start: 20100304, end: 20100510
  3. NEXAVAR [Suspect]
     Dosage: TOTAL DAILY DOSE: 800 MG  UNIT DOSE: 200 MG
     Route: 048
     Dates: start: 20100511, end: 20100605
  4. GASTER D [Concomitant]
     Indication: PROPHYLAXIS
     Route: 048
     Dates: start: 20100608
  5. GASTER D [Concomitant]
     Route: 048
     Dates: start: 20091204
  6. GASLON N_OD [Concomitant]
     Route: 048
     Dates: start: 20091204
  7. BIOFERMIN [Concomitant]
     Route: 048
     Dates: start: 20091204
  8. URSO 250 [Concomitant]
     Route: 048
     Dates: start: 20091204
  9. MAGMITT [Concomitant]
     Route: 048
     Dates: start: 20091204
  10. NEO-MINOPHAGEN C [Concomitant]
     Route: 041
     Dates: start: 20100603, end: 20100603
  11. NEO-MINOPHAGEN C [Concomitant]
     Dosage: UNIT DOSE: 20 ML
     Route: 041
     Dates: start: 20100609
  12. HANP [Concomitant]
     Dosage: 0.5 MCG/KG/MIN
     Route: 041
     Dates: start: 20100613
  13. LASIX [Concomitant]
     Dosage: UNIT DOSE: 20 MG
     Route: 042
     Dates: start: 20100610
  14. LASIX [Concomitant]
     Dosage: UNIT DOSE: 20 MG
     Route: 048
     Dates: start: 20100606, end: 20100613
  15. ALDACTONE [Concomitant]
     Dosage: UNIT DOSE: 25 MG
     Route: 048
     Dates: start: 20100606
  16. LIVACT [Concomitant]
     Dosage: UNIT DOSE: 4.15 G
     Route: 048
     Dates: start: 20100606
  17. DOPAMINE HCL [Concomitant]
     Dosage: UNIT DOSE: 0.3 %
     Route: 041
     Dates: start: 20100608
  18. SOLULACT [Concomitant]
     Indication: INTERSTITIAL LUNG DISEASE
     Dosage: UNIT DOSE: 500 ML
     Route: 041
     Dates: start: 20100608
  19. OMEPRAL [Concomitant]
     Dosage: UNIT DOSE: 20 MG
     Route: 041
     Dates: start: 20100609

REACTIONS (7)
  - ALOPECIA [None]
  - DIARRHOEA [None]
  - HEPATIC FUNCTION ABNORMAL [None]
  - HYPERTENSION [None]
  - INTERSTITIAL LUNG DISEASE [None]
  - PALMAR-PLANTAR ERYTHRODYSAESTHESIA SYNDROME [None]
  - RENAL IMPAIRMENT [None]
